FAERS Safety Report 18000696 (Version 2)
Quarter: 2020Q3

REPORT INFORMATION
  Report Type: Spontaneous
  Country: US (occurrence: US)
  Receive Date: 20200709
  Receipt Date: 20200716
  Transmission Date: 20201103
  Serious: No
  Sender: FDA-Public Use
  Company Number: US-SA-2020SA174335

PATIENT

DRUGS (2)
  1. TOUJEO [Suspect]
     Active Substance: INSULIN GLARGINE
     Dosage: UNKNOWN
     Route: 065
  2. INSULIN LISPRO [Suspect]
     Active Substance: INSULIN LISPRO
     Dosage: UNKNOWN
     Route: 065

REACTIONS (4)
  - Psoriasis [Unknown]
  - Blood glucose decreased [Recovered/Resolved]
  - Product dose omission issue [Unknown]
  - Palpitations [Recovered/Resolved]
